FAERS Safety Report 5297461-5 (Version None)
Quarter: 2007Q2

REPORT INFORMATION
  Report Type: 
  Country: None (occurrence: None)
  Receive Date: 20070416
  Receipt Date: 20061212
  Transmission Date: 20071010
  Serious: No
  Sender: FDA-Public Use
  Company Number: 2006GPS02678

PATIENT
  Sex: Female

DRUGS (1)
  1. COMPAZINE [Suspect]
     Indication: DRUG USE FOR UNKNOWN INDICATION
     Route: 065

REACTIONS (2)
  - ABNORMAL BEHAVIOUR [None]
  - UNEVALUABLE EVENT [None]
